FAERS Safety Report 26150944 (Version 1)
Quarter: 2025Q4

REPORT INFORMATION
  Report Type: Spontaneous
  Country: CN (occurrence: CN)
  Receive Date: 20251212
  Receipt Date: 20251212
  Transmission Date: 20260118
  Serious: Yes (Life-Threatening, Other)
  Sender: BAYER HEALTHCARE PHARMACEUTICALS INC.
  Company Number: CN-BAYER-2025A163810

PATIENT
  Age: 86 Year
  Sex: Female
  Weight: 50 kg

DRUGS (1)
  1. AVELOX [Suspect]
     Active Substance: MOXIFLOXACIN HYDROCHLORIDE
     Indication: Pneumonia
     Dosage: 0.4 G, QD
     Dates: start: 20251206, end: 20251207

REACTIONS (5)
  - Epilepsy [Recovered/Resolved]
  - Muscle twitching [Recovered/Resolved]
  - Muscle twitching [Recovered/Resolved]
  - Oxygen saturation decreased [None]
  - Heart rate increased [None]

NARRATIVE: CASE EVENT DATE: 20251207
